FAERS Safety Report 18774050 (Version 1)
Quarter: 2021Q1

REPORT INFORMATION
  Report Type: Spontaneous
  Country: US (occurrence: US)
  Receive Date: 20210122
  Receipt Date: 20210122
  Transmission Date: 20210419
  Serious: Yes (Death, Other)
  Sender: FDA-Public Use
  Company Number: None

PATIENT
  Age: 58 Year
  Sex: Male

DRUGS (3)
  1. KCI G?TUBE (8/2?8/10), KCI IV PRN (7/21?8/20) [Concomitant]
  2. CHLORHEXIDINE GLUCONATE ORAL RINSE, 0.12% [Suspect]
     Active Substance: CHLORHEXIDINE GLUCONATE
     Dosage: ?          OTHER ROUTE:SWISH AND SPIT?
     Dates: start: 20200714, end: 20200820
  3. CHLORHEXIDINE GLUCONATE ORAL RINSE, 0.12% [Suspect]
     Active Substance: CHLORHEXIDINE GLUCONATE
     Indication: PNEUMONIA
     Dosage: ?          OTHER ROUTE:SWISH AND SPIT?
     Dates: start: 20200713, end: 20200820

REACTIONS (11)
  - Recalled product [None]
  - Fibrin D dimer increased [None]
  - Acute respiratory distress syndrome [None]
  - COVID-19 [None]
  - Gram stain positive [None]
  - Pneumonia [None]
  - Sepsis [None]
  - Burkholderia test positive [None]
  - Thrombocytopenia [None]
  - Pulmonary fibrosis [None]
  - Haemorrhage [None]

NARRATIVE: CASE EVENT DATE: 20200817
